FAERS Safety Report 13822326 (Version 2)
Quarter: 2017Q3

REPORT INFORMATION
  Report Type: Spontaneous
  Country: FR (occurrence: FR)
  Receive Date: 20170801
  Receipt Date: 20170803
  Transmission Date: 20171127
  Serious: Yes (Hospitalization)
  Sender: FDA-Public Use
  Company Number: FR-ABBVIE-17P-056-2058016-00

PATIENT
  Age: 9 Year
  Sex: Male

DRUGS (1)
  1. MICROPAKINE L.P. [Suspect]
     Active Substance: VALPROATE SODIUM
     Indication: ENCEPHALOPATHY
     Route: 048
     Dates: end: 20170522

REACTIONS (2)
  - Off label use [Recovered/Resolved with Sequelae]
  - Bezoar [Unknown]

NARRATIVE: CASE EVENT DATE: 20170522
